FAERS Safety Report 8979056 (Version 1)
Quarter: 2012Q4

REPORT INFORMATION
  Report Type: Report from Study
  Country: US (occurrence: US)
  Receive Date: 20121221
  Receipt Date: 20121221
  Transmission Date: 20130627
  Serious: Yes (Other)
  Sender: FDA-Public Use
  Company Number: US-ABBOTT-12P-163-1021568-00

PATIENT
  Sex: Male
  Weight: 70.37 kg

DRUGS (5)
  1. HUMIRA [Suspect]
     Indication: RHEUMATOID ARTHRITIS
     Dates: start: 2011
  2. HYDROCODONE [Suspect]
     Indication: PROCEDURAL PAIN
  3. PREDNISONE [Concomitant]
     Indication: RHEUMATOID ARTHRITIS
  4. GABAPENTIN [Concomitant]
     Indication: RESTLESS LEGS SYNDROME
  5. UNKNOWN CHOLESTEROL MEDICATION [Concomitant]
     Indication: HYPERLIPIDAEMIA

REACTIONS (3)
  - Inguinal hernia [Recovered/Resolved]
  - Abasia [Recovered/Resolved]
  - Procedural pain [Recovered/Resolved]
